FAERS Safety Report 20531337 (Version 1)
Quarter: 2022Q1

REPORT INFORMATION
  Report Type: Spontaneous
  Country: US (occurrence: None)
  Receive Date: 20220228
  Receipt Date: 20220228
  Transmission Date: 20220423
  Serious: Yes (unspecified)
  Sender: FDA-Public Use
  Company Number: None

PATIENT
  Age: 69 Year
  Sex: Male
  Weight: 104.3 kg

DRUGS (2)
  1. TIXAGEVIMAB [Suspect]
     Active Substance: TIXAGEVIMAB
     Indication: Immunosuppression
     Dosage: OTHER FREQUENCY : ONE TIME INJECTION;?
     Route: 030
     Dates: start: 20220225, end: 20220225
  2. Diphenhydramine 25 mg IVP [Concomitant]
     Dates: start: 20220225, end: 20220225

REACTIONS (5)
  - Flushing [None]
  - Erythema [None]
  - Oxygen saturation decreased [None]
  - Respiratory rate increased [None]
  - Infusion related reaction [None]

NARRATIVE: CASE EVENT DATE: 20220225
